FAERS Safety Report 4372621-6 (Version None)
Quarter: 2004Q2

REPORT INFORMATION
  Report Type: 
  Country: None (occurrence: None)
  Receive Date: 20040526
  Receipt Date: 20040517
  Transmission Date: 20050107
  Serious: Yes (Hospitalization)
  Sender: FDA-Public Use
  Company Number: US-SHR-04-024896

PATIENT
  Age: 72 Year
  Sex: Male
  Weight: 74.8 kg

DRUGS (12)
  1. BETASERON [Suspect]
     Indication: MULTIPLE SCLEROSIS
     Dosage: 8 MIU, EVERY 2D, SUBCUTANEOUS
     Route: 058
     Dates: start: 19940622, end: 20040430
  2. BETASERON [Suspect]
     Indication: MULTIPLE SCLEROSIS
     Dosage: 8 MIU, EVERY 2D, SUBCUTANEOUS
     Route: 058
     Dates: start: 20040502
  3. ZOCOR [Concomitant]
  4. GEMFIBROZIL [Concomitant]
  5. BACLOFEN [Concomitant]
  6. METOPROLOL (METOPROLOL) [Concomitant]
  7. ASPIRIN [Concomitant]
  8. MULTIVITAMINS (PANTHENOL, RETINOL) [Concomitant]
  9. VITAMIN E [Concomitant]
  10. DITROPAN /SCH/(OXYBUTYNIN HYDROCHLORIDE) [Concomitant]
  11. AMANTADINE HCL [Concomitant]
  12. HYDROCHLOROTHIAZIDE [Concomitant]

REACTIONS (1)
  - BILE DUCT STONE [None]
